FAERS Safety Report 5759453-9 (Version None)
Quarter: 2008Q2

REPORT INFORMATION
  Report Type: 
  Country: None (occurrence: None)
  Receive Date: 20080605
  Receipt Date: 20071126
  Transmission Date: 20081010
  Serious: No
  Sender: FDA-Public Use
  Company Number: US-BAYER-200715255NA

PATIENT
  Age: 22 Year
  Sex: Female
  Weight: 52 kg

DRUGS (1)
  1. MIRENA [Suspect]
     Indication: CONTRACEPTION
     Route: 015
     Dates: start: 20070711

REACTIONS (5)
  - DYSPAREUNIA [None]
  - GENITAL PAIN [None]
  - HYPOMENORRHOEA [None]
  - PROCEDURAL PAIN [None]
  - VULVOVAGINAL DRYNESS [None]
